FAERS Safety Report 6697212-3 (Version None)
Quarter: 2010Q2

REPORT INFORMATION
  Report Type: 
  Country: None (occurrence: None)
  Receive Date: 20100426
  Receipt Date: 20100414
  Transmission Date: 20101027
  Serious: Yes (Other)
  Sender: FDA-Public Use
  Company Number: US-PFIZER INC-2010047268

PATIENT
  Age: 67 Year
  Sex: Male
  Weight: 90.1 kg

DRUGS (8)
  1. BLINDED *NO SUBJECT DRUG [Suspect]
     Indication: RENAL CELL CARCINOMA
     Dosage: UNK
     Route: 048
     Dates: start: 20091202
  2. BLINDED *PLACEBO [Suspect]
     Indication: RENAL CELL CARCINOMA
     Dosage: UNK
     Route: 048
     Dates: start: 20091202
  3. BLINDED *SORAFENIB [Suspect]
     Indication: RENAL CELL CARCINOMA
     Dosage: UNK
     Route: 048
     Dates: start: 20091202
  4. BLINDED SUNITINIB MALATE [Suspect]
     Indication: RENAL CELL CARCINOMA
     Dosage: UNK
     Route: 048
     Dates: start: 20091202
  5. BLINDED *NO SUBJECT DRUG [Suspect]
     Dosage: UNK
     Dates: start: 20091202
  6. BLINDED *PLACEBO [Suspect]
     Dosage: UNK
     Dates: start: 20091202
  7. BLINDED *SORAFENIB [Suspect]
     Dosage: UNK
     Dates: start: 20091202
  8. BLINDED SUNITINIB MALATE [Suspect]
     Dosage: UNK
     Dates: start: 20091202

REACTIONS (1)
  - ANAL ULCER [None]
